FAERS Safety Report 22303253 (Version 1)
Quarter: 2023Q2

REPORT INFORMATION
  Report Type: Other
  Country: US (occurrence: None)
  Receive Date: 20230510
  Receipt Date: 20230510
  Transmission Date: 20230722
  Serious: Yes (Other)
  Sender: FDA-Public Use
  Company Number: US-ROCHE-3346392

PATIENT
  Age: 45 Year
  Sex: Male

DRUGS (7)
  1. RITUXIMAB [Suspect]
     Active Substance: RITUXIMAB
     Indication: Product used for unknown indication
     Route: 065
  2. METHOTREXATE [Suspect]
     Active Substance: METHOTREXATE
     Indication: Product used for unknown indication
     Route: 065
  3. LITHIUM [Concomitant]
     Active Substance: LITHIUM
  4. CALCIUM CARBONATE [Concomitant]
     Active Substance: CALCIUM CARBONATE
  5. CALCITONIN [Concomitant]
     Active Substance: CALCITONIN
  6. ZOLEDRONIC ACID [Concomitant]
     Active Substance: ZOLEDRONIC ACID
  7. DENOSUMAB [Concomitant]
     Active Substance: DENOSUMAB

REACTIONS (2)
  - Pneumocystis jirovecii pneumonia [Unknown]
  - Hypercalcaemia [Recovered/Resolved]
